FAERS Safety Report 6396206-5 (Version None)
Quarter: 2009Q4

REPORT INFORMATION
  Report Type: 
  Country: None (occurrence: None)
  Receive Date: 20091011
  Receipt Date: 20090928
  Transmission Date: 20100525
  Serious: Yes (Other)
  Sender: FDA-Public Use
  Company Number: PHHY2009GB41763

PATIENT
  Age: 27 Year
  Sex: Female

DRUGS (8)
  1. CYCLOSPORINE [Suspect]
     Indication: RENAL TRANSPLANT
     Dosage: 200 MG, BID
     Route: 048
  2. CYCLOSPORINE [Suspect]
     Dosage: 100 MG, BID
     Route: 048
  3. AZATHIOPRINE [Suspect]
     Indication: IMMUNOSUPPRESSION
     Dosage: 75 MG DAILY
  4. AZATHIOPRINE [Suspect]
     Dosage: 50 MG DAILY
  5. PREDNISONE [Suspect]
     Indication: IMMUNOSUPPRESSION
     Dosage: 20 MG DAILY
  6. PREDNISONE [Suspect]
     Dosage: 5 MG DAILY
  7. CORTICOSTEROID NOS [Concomitant]
  8. NIFEDIPINE [Concomitant]
     Dosage: 30 MG DAILY

REACTIONS (5)
  - BLOOD PRESSURE INCREASED [None]
  - CAESAREAN SECTION [None]
  - DRUG EXPOSURE DURING PREGNANCY [None]
  - PREMATURE LABOUR [None]
  - PROTEINURIA [None]
